FAERS Safety Report 21200243 (Version 1)
Quarter: 2022Q3

REPORT INFORMATION
  Report Type: Spontaneous
  Country: NO (occurrence: NO)
  Receive Date: 20220811
  Receipt Date: 20220811
  Transmission Date: 20221027
  Serious: Yes (Other)
  Sender: FDA-Public Use
  Company Number: None

PATIENT
  Age: 41 Year
  Sex: Female

DRUGS (13)
  1. ZOLOFT [Interacting]
     Active Substance: SERTRALINE HYDROCHLORIDE
     Indication: Depression
     Dosage: 100 MG, ONCE A DAY
  2. CYMBALTA [Interacting]
     Active Substance: DULOXETINE HYDROCHLORIDE
     Indication: Pain
     Dosage: 60 MG, ONCE A DAY
     Dates: start: 202205
  3. ROPINIROLE [Interacting]
     Active Substance: ROPINIROLE
     Indication: Restless legs syndrome
     Dosage: DOSE RECENTLY INCREASED TO 2 MG
  4. CALCIUM CARBONATE\CHOLECALCIFEROL [Concomitant]
     Active Substance: CALCIUM CARBONATE\CHOLECALCIFEROL
     Indication: Osteoporosis prophylaxis
     Dosage: 1 DF, 1X/DAY
  5. BISOPROLOL [Concomitant]
     Active Substance: BISOPROLOL
     Indication: Cardiac disorder
     Dosage: 2.5 MG, 1X/DAY
  6. PREDNISOLONE [Concomitant]
     Active Substance: PREDNISOLONE
     Indication: Systemic lupus erythematosus
     Dosage: 5 MG, 1X/DAY
  7. LOCOID [Concomitant]
     Active Substance: HYDROCORTISONE BUTYRATE
     Dosage: APPLIED TWICE DAILY FOR 7 DAYS, THEN ONCE DAILY FOR 7 DAYS, FOLLOWED BY EVERY OTHER DAY FOR 7 DAYS
  8. UREA [Concomitant]
     Active Substance: UREA
     Indication: Rash
     Dosage: APPLIED SEVERAL TIMES PER DAY
  9. OMEPRAZOL PENSA [OMEPRAZOLE] [Concomitant]
     Indication: Oesophageal disorder
     Dosage: 20 MG, EVERY 12 DAYS
  10. CARBOMER [Concomitant]
     Active Substance: CARBOMER
     Indication: Dry eye
     Dosage: 1 DF, 4X/DAY (EVERY 6 HOURS)
  11. FLUTICASONE FUROATE [Concomitant]
     Active Substance: FLUTICASONE FUROATE
     Indication: Sinusitis
     Dosage: TWO DOSES PER DAY WHEN NEEDED UP TO TWO WEEK, MAINTENANCE X 1 FOR LONGER PERIODS
  12. ACETAMINOPHEN [Concomitant]
     Active Substance: ACETAMINOPHEN
     Dosage: 1 G, AS NEEDED (EVERY 8 HOURS UP TO 3 TIMES PER DAY)
  13. DIFFERIN [Concomitant]
     Active Substance: ADAPALENE
     Dosage: 1 DF, 1X/DAY

REACTIONS (14)
  - Drug interaction [Not Recovered/Not Resolved]
  - Serotonin syndrome [Not Recovered/Not Resolved]
  - Hallucination, olfactory [Not Recovered/Not Resolved]
  - Hallucination, visual [Not Recovered/Not Resolved]
  - Visual impairment [Not Recovered/Not Resolved]
  - Palpitations [Not Recovered/Not Resolved]
  - Tremor [Not Recovered/Not Resolved]
  - Formication [Not Recovered/Not Resolved]
  - Fatigue [Not Recovered/Not Resolved]
  - Electric shock sensation [Not Recovered/Not Resolved]
  - Nausea [Not Recovered/Not Resolved]
  - Retching [Not Recovered/Not Resolved]
  - Headache [Not Recovered/Not Resolved]
  - Pyrexia [Unknown]

NARRATIVE: CASE EVENT DATE: 20220101
